FAERS Safety Report 19950648 (Version 3)
Quarter: 2021Q4

REPORT INFORMATION
  Report Type: Report from Study
  Country: CA (occurrence: CA)
  Receive Date: 20211013
  Receipt Date: 20211109
  Transmission Date: 20220303
  Serious: Yes (Other)
  Sender: FDA-Public Use
  Company Number: CA-JNJFOC-20211002421

PATIENT
  Age: 60 Year
  Sex: Female

DRUGS (17)
  1. SELEXIPAG [Suspect]
     Active Substance: SELEXIPAG
     Indication: Pulmonary hypertension
     Route: 048
     Dates: start: 20200803
  2. SELEXIPAG [Suspect]
     Active Substance: SELEXIPAG
     Dosage: 800 MCG IN AM, 800 MCG IN PM AND 1000MCG AT BEDTIME
     Route: 048
     Dates: start: 20210930
  3. SELEXIPAG [Suspect]
     Active Substance: SELEXIPAG
     Dosage: AROUND 9PM,
     Route: 048
  4. SELEXIPAG [Suspect]
     Active Substance: SELEXIPAG
     Route: 048
     Dates: start: 20211007
  5. SELEXIPAG [Suspect]
     Active Substance: SELEXIPAG
     Route: 048
     Dates: start: 202110
  6. NEXIUM [Concomitant]
     Active Substance: ESOMEPRAZOLE MAGNESIUM
  7. XANAX [Concomitant]
     Active Substance: ALPRAZOLAM
  8. OXYGEN [Concomitant]
     Active Substance: OXYGEN
  9. VIAGRA [Concomitant]
     Active Substance: SILDENAFIL CITRATE
  10. PANTOPRAZOLE SODIUM [Concomitant]
     Active Substance: PANTOPRAZOLE SODIUM
  11. DOMPERIDONE [Concomitant]
     Active Substance: DOMPERIDONE
  12. LASIX [Concomitant]
     Active Substance: FUROSEMIDE
  13. ALDACTONE [Concomitant]
     Active Substance: SPIRONOLACTONE
  14. COLACE [Concomitant]
     Active Substance: DOCUSATE SODIUM
  15. SYMBICORT [Concomitant]
     Active Substance: BUDESONIDE\FORMOTEROL FUMARATE DIHYDRATE
  16. MOMETASONE FUROATE [Concomitant]
     Active Substance: MOMETASONE FUROATE
  17. ATIVAN [Concomitant]
     Active Substance: LORAZEPAM

REACTIONS (10)
  - Hypotension [Not Recovered/Not Resolved]
  - Vertigo [Unknown]
  - Off label use [Unknown]
  - Product use issue [Unknown]
  - Vision blurred [Recovered/Resolved]
  - Headache [Not Recovered/Not Resolved]
  - Weight increased [Unknown]
  - Dizziness [Recovered/Resolved]
  - Flushing [Recovered/Resolved]
  - Localised oedema [Unknown]

NARRATIVE: CASE EVENT DATE: 20210930
